FAERS Safety Report 5335960-8 (Version None)
Quarter: 2007Q2

REPORT INFORMATION
  Report Type: 
  Country: None (occurrence: None)
  Receive Date: 20070527
  Receipt Date: 20070522
  Transmission Date: 20071010
  Serious: No
  Sender: FDA-Public Use
  Company Number: IT-MINISAL02-72619

PATIENT
  Sex: Male

DRUGS (1)
  1. MULTIHANCE [Suspect]
     Route: 042
     Dates: start: 20070411, end: 20070411

REACTIONS (1)
  - CARDIAC ARREST [None]
